FAERS Safety Report 25766157 (Version 1)
Quarter: 2025Q3

REPORT INFORMATION
  Report Type: Other
  Country: EU (occurrence: EU)
  Receive Date: 20250905
  Receipt Date: 20250905
  Transmission Date: 20251021
  Serious: Yes (Other)
  Sender: Steriscience PTE
  Company Number: None

PATIENT
  Age: 67 Year
  Sex: Male

DRUGS (3)
  1. VANCOMYCIN [Suspect]
     Active Substance: VANCOMYCIN
     Indication: Sepsis
     Route: 042
     Dates: start: 20250715, end: 20250820
  2. MEROPENEM [Suspect]
     Active Substance: MEROPENEM
     Indication: Bacterial sepsis
     Dosage: 1000 MG THREE TIMES A DAY
     Route: 042
     Dates: start: 20250715, end: 20250820
  3. CASPOFUNGIN [Suspect]
     Active Substance: CASPOFUNGIN
     Indication: Sepsis
     Route: 042
     Dates: start: 20250714, end: 20250819

REACTIONS (2)
  - Leukopenia [None]
  - Anaemia [None]

NARRATIVE: CASE EVENT DATE: 20250813
